FAERS Safety Report 4788564-X (Version None)
Quarter: 2005Q4

REPORT INFORMATION
  Report Type: 
  Country: None (occurrence: None)
  Receive Date: 20051005
  Receipt Date: 20050908
  Transmission Date: 20060501
  Serious: Yes (Hospitalization)
  Sender: FDA-Public Use
  Company Number: JP-MERCK-0509USA01374

PATIENT
  Age: 63 Year
  Sex: Male
  Weight: 45 kg

DRUGS (8)
  1. PRIMAXIN [Suspect]
     Indication: PNEUMONIA ASPIRATION
     Route: 041
     Dates: start: 20050815, end: 20050830
  2. PRIMAXIN [Suspect]
     Route: 041
     Dates: start: 20050905, end: 20050907
  3. PAZUCROSS [Suspect]
     Indication: PNEUMONIA ASPIRATION
     Route: 041
     Dates: start: 20050831, end: 20050904
  4. CONIEL [Concomitant]
     Indication: HYPERTENSION
     Route: 048
     Dates: start: 20050825
  5. VASOTEC [Concomitant]
     Indication: HYPERTENSION
     Route: 048
     Dates: start: 20050907
  6. TAKEPRON [Concomitant]
     Route: 048
     Dates: start: 20050823
  7. MUCOSOLVAN [Concomitant]
     Route: 048
     Dates: start: 20050824
  8. [THERAPY UNSPECIFIED] [Concomitant]
     Route: 048
     Dates: start: 20050831

REACTIONS (2)
  - CLOSTRIDIUM COLITIS [None]
  - STAPHYLOCOCCAL INFECTION [None]
